FAERS Safety Report 14919814 (Version 1)
Quarter: 2018Q2

REPORT INFORMATION
  Report Type: Spontaneous
  Country: US (occurrence: US)
  Receive Date: 20180502
  Receipt Date: 20180502
  Transmission Date: 20180711
  Serious: Yes (Hospitalization)
  Sender: FDA-Public Use
  Company Number: None

PATIENT
  Age: 59 Year
  Sex: Female
  Weight: 54.4 kg

DRUGS (11)
  1. CALCIUM CARBONATE -VITAMIN D [Concomitant]
  2. CYANOCOBALAMIN. [Concomitant]
     Active Substance: CYANOCOBALAMIN
  3. FERROUS SULFATE. [Concomitant]
     Active Substance: FERROUS SULFATE
  4. COPPER GLUCONATE [Concomitant]
     Active Substance: COPPER GLUCONATE
  5. VEDOLIZUMAB [Suspect]
     Active Substance: VEDOLIZUMAB
     Dosage: ?          OTHER FREQUENCY:Q8WKS;?
     Route: 042
  6. MULTIVITAMIN [Concomitant]
     Active Substance: VITAMINS
  7. MUPIROCIN. [Concomitant]
     Active Substance: MUPIROCIN
  8. ERGOCALCIFEROL. [Concomitant]
     Active Substance: ERGOCALCIFEROL
  9. HYDROXYZINE [Concomitant]
     Active Substance: HYDROXYZINE HYDROCHLORIDE
  10. LORATADINE. [Concomitant]
     Active Substance: LORATADINE
  11. MORPHINE [Concomitant]
     Active Substance: MORPHINE

REACTIONS (5)
  - Gastrointestinal haemorrhage [None]
  - Vomiting [None]
  - Nausea [None]
  - Iron deficiency anaemia [None]
  - Diarrhoea [None]

NARRATIVE: CASE EVENT DATE: 20180414
